FAERS Safety Report 9009229 (Version 1)
Quarter: 2013Q1

REPORT INFORMATION
  Report Type: Spontaneous
  Country: DE (occurrence: DE)
  Receive Date: 20130111
  Receipt Date: 20130111
  Transmission Date: 20140127
  Serious: No
  Sender: FDA-Public Use
  Company Number: DE-TEVA-379290GER

PATIENT
  Sex: 0

DRUGS (1)
  1. DOXY-M [Suspect]

REACTIONS (1)
  - Haematochezia [Unknown]
